FAERS Safety Report 4848757-X (Version None)
Quarter: 2005Q4

REPORT INFORMATION
  Report Type: 
  Country: None (occurrence: None)
  Receive Date: 20051206
  Receipt Date: 20051121
  Transmission Date: 20060501
  Serious: Yes (Hospitalization)
  Sender: FDA-Public Use
  Company Number: GBR-2005-0001992

PATIENT
  Age: 58 Year
  Sex: Male

DRUGS (7)
  1. HYDROMORPHONE HCL [Suspect]
     Dosage: 8 MG,  BID, ORAL
     Route: 048
     Dates: start: 20030720
  2. MORPHINE SULFATE [Suspect]
     Dosage: 30 MG, BID, ORAL
     Route: 048
     Dates: start: 20030718, end: 20030720
  3. MORPHINE [Suspect]
     Dosage: 10 MG, DAILY, ORAL
     Route: 048
     Dates: start: 20030718, end: 20030720
  4. LEVOTHYROXINE SODIUM [Concomitant]
  5. BUMETANIDE [Concomitant]
  6. HYDROMORPHONE HCL [Concomitant]
  7. MORPHINE [Concomitant]

REACTIONS (16)
  - AZOTAEMIA [None]
  - BLOOD BILIRUBIN INCREASED [None]
  - BLOOD PH INCREASED [None]
  - BLOOD POTASSIUM INCREASED [None]
  - BLOOD SODIUM DECREASED [None]
  - BRADYPNOEA [None]
  - CONFUSIONAL STATE [None]
  - DEHYDRATION [None]
  - DRUG TOXICITY [None]
  - HYPERKALAEMIA [None]
  - HYPOALBUMINAEMIA [None]
  - HYPOTENSION [None]
  - MALNUTRITION [None]
  - MENTAL IMPAIRMENT [None]
  - MUCOSAL DRYNESS [None]
  - SOMNOLENCE [None]
